FAERS Safety Report 13336297 (Version 1)
Quarter: 2017Q1

REPORT INFORMATION
  Report Type: Spontaneous
  Country: US (occurrence: US)
  Receive Date: 20170315
  Receipt Date: 20170315
  Transmission Date: 20170428
  Serious: No
  Sender: FDA-Public Use
  Company Number: US-BIOGEN-2017BI00369621

PATIENT
  Sex: Female

DRUGS (1)
  1. TECFIDERA [Suspect]
     Active Substance: DIMETHYL FUMARATE
     Indication: PRODUCT USED FOR UNKNOWN INDICATION
     Route: 065
     Dates: start: 20150729, end: 20160214

REACTIONS (5)
  - Neck pain [Unknown]
  - Muscle twitching [Unknown]
  - Fatigue [Unknown]
  - Musculoskeletal pain [Unknown]
  - Paraesthesia [Unknown]
